FAERS Safety Report 14783048 (Version 1)
Quarter: 2018Q2

REPORT INFORMATION
  Report Type: Spontaneous
  Country: US (occurrence: US)
  Receive Date: 20180420
  Receipt Date: 20180420
  Transmission Date: 20180711
  Serious: No
  Sender: FDA-Public Use
  Company Number: US-SHIRE-US201814901

PATIENT
  Age: 9 Year
  Sex: Male
  Weight: 28.3 kg

DRUGS (3)
  1. VYVANSE [Suspect]
     Active Substance: LISDEXAMFETAMINE DIMESYLATE
     Indication: ATTENTION DEFICIT/HYPERACTIVITY DISORDER
     Dosage: 50 MG, 1X/DAY:QD
     Route: 048
     Dates: start: 201710
  2. VYVANSE [Suspect]
     Active Substance: LISDEXAMFETAMINE DIMESYLATE
     Dosage: 30 MG, DAILY (DURING THE WEEKENDS BUT NOT ON WEEKENDS AND DURING THE SCHOOL BREAKS)
     Route: 065
     Dates: start: 201708
  3. VYVANSE [Suspect]
     Active Substance: LISDEXAMFETAMINE DIMESYLATE
     Dosage: 40 MG, DAILY (DURING THE WEEK BUT NOT ON WEEKENDS AND DURING SCHOOL BREAKS)
     Route: 065

REACTIONS (6)
  - Disturbance in attention [Recovered/Resolved]
  - Product physical issue [Recovered/Resolved]
  - Dry eye [Not Recovered/Not Resolved]
  - Mental disorder [Recovered/Resolved]
  - Off label use [Recovered/Resolved]
  - Anxiety [Not Recovered/Not Resolved]

NARRATIVE: CASE EVENT DATE: 201708
